FAERS Safety Report 13191038 (Version 1)
Quarter: 2017Q1

REPORT INFORMATION
  Report Type: Spontaneous
  Country: AT (occurrence: AT)
  Receive Date: 20170207
  Receipt Date: 20170207
  Transmission Date: 20170428
  Serious: Yes (Other)
  Sender: FDA-Public Use
  Company Number: AT-ROCHE-1889142

PATIENT
  Age: 53 Year
  Sex: Male
  Weight: 82 kg

DRUGS (21)
  1. PASPERTIN (AUSTRIA) [Concomitant]
     Route: 065
  2. VECTIBIX [Suspect]
     Active Substance: PANITUMUMAB
     Indication: ADENOCARCINOMA
     Dosage: CYCLE 1 DAY 1  FOR 1 HOUR
     Route: 042
     Dates: start: 20160727
  3. VECTIBIX [Suspect]
     Active Substance: PANITUMUMAB
     Dosage: CYCLE 2 DAY 1  FOR 1 HOUR
     Route: 042
     Dates: start: 20160818
  4. VECTIBIX [Suspect]
     Active Substance: PANITUMUMAB
     Dosage: CYCLE 2 DAY 8  FOR 1 HOUR
     Route: 042
     Dates: start: 20160825
  5. VECTIBIX [Suspect]
     Active Substance: PANITUMUMAB
     Dosage: CYCLE 3 DAY 15  FOR 1 HOUR
     Route: 042
     Dates: start: 20160929
  6. VECTIBIX [Suspect]
     Active Substance: PANITUMUMAB
     Dosage: CYCLE 3 DAY 15  FOR 1 HOUR
     Route: 042
     Dates: start: 20160929
  7. VECTIBIX [Suspect]
     Active Substance: PANITUMUMAB
     Dosage: WITH 250 ML NACL FOR 1 1 HR (CYCLE 5 DAY 8)
     Route: 042
     Dates: start: 20161201
  8. VECTIBIX [Suspect]
     Active Substance: PANITUMUMAB
     Dosage: CYCLE 1 DAY 15  FOR 1 HOUR
     Route: 042
     Dates: start: 20160810
  9. OXALIPLATIN. [Suspect]
     Active Substance: OXALIPLATIN
     Indication: ADENOCARCINOMA
     Dosage: IN 500 GLUCOSE (5 %) SOLUTION FOR 3 HOURS
     Route: 042
     Dates: start: 20160727, end: 20160929
  10. XELODA [Suspect]
     Active Substance: CAPECITABINE
     Indication: ADENOCARCINOMA
     Dosage: 1000 MG/M2 FROM DAY 1 TO DAY 14
     Route: 048
  11. VECTIBIX [Suspect]
     Active Substance: PANITUMUMAB
     Dosage: IN SODIUIM CHLORIDE (NACL) IN 250 ML FOR 1 HR (CYCLE 4 DAY 15)
     Route: 042
     Dates: start: 20161103
  12. VECTIBIX [Suspect]
     Active Substance: PANITUMUMAB
     Dosage: 80% ADMINISTRATION (CYCLE 4 DAY 15)
     Route: 042
     Dates: start: 20161124
  13. OXALIPLATIN. [Suspect]
     Active Substance: OXALIPLATIN
     Route: 042
     Dates: start: 20161124
  14. DIBONDRIN [Concomitant]
     Active Substance: DIPHENHYDRAMINE HYDROCHLORIDE
  15. VECTIBIX [Suspect]
     Active Substance: PANITUMUMAB
     Dosage: WITH 250 ML NACL FOR 1 1 HR (CYCLE 6 DAY 8)
     Route: 042
     Dates: start: 20161215
  16. OXALIPLATIN. [Suspect]
     Active Substance: OXALIPLATIN
     Route: 042
     Dates: start: 20161103
  17. OXALIPLATIN. [Suspect]
     Active Substance: OXALIPLATIN
     Route: 042
     Dates: start: 20161215
  18. ZANTAC [Concomitant]
     Active Substance: RANITIDINE HYDROCHLORIDE
     Route: 065
     Dates: start: 20161103
  19. VECTIBIX [Suspect]
     Active Substance: PANITUMUMAB
     Dosage: CYCLE 2 DAY 1  FOR 1 HOUR
     Route: 042
     Dates: start: 20160915
  20. VECTIBIX [Suspect]
     Active Substance: PANITUMUMAB
     Dosage: WITH 250 ML NACL FOR 1 1 HR (CYCLE 6 DAY 8)
     Route: 042
     Dates: start: 20161229, end: 20161229
  21. FORTECORTIN [Concomitant]
     Active Substance: DEXAMETHASONE
     Route: 065
     Dates: start: 20160727

REACTIONS (4)
  - Skin toxicity [Unknown]
  - HIV test positive [Not Recovered/Not Resolved]
  - Nail bed inflammation [Recovered/Resolved]
  - Dermatitis acneiform [Recovered/Resolved]
